FAERS Safety Report 7763820-1 (Version None)
Quarter: 2011Q3

REPORT INFORMATION
  Report Type: 
  Country: None (occurrence: None)
  Receive Date: 20110921
  Receipt Date: 20100826
  Transmission Date: 20111222
  Serious: No
  Sender: FDA-Public Use
  Company Number: US-BAYER-201034683NA

PATIENT
  Age: 27 Year
  Sex: Female

DRUGS (2)
  1. MIRENA [Suspect]
     Indication: CONTRACEPTION
     Dosage: 20 MCG/24HR, UNK
     Route: 015
     Dates: start: 20100826
  2. IBUPROFEN [Concomitant]
     Indication: ABDOMINAL PAIN LOWER
     Dosage: UNK
     Dates: start: 20100826

REACTIONS (1)
  - ABDOMINAL PAIN LOWER [None]
